FAERS Safety Report 5882539-5 (Version None)
Quarter: 2008Q3

REPORT INFORMATION
  Report Type: 
  Country: None (occurrence: None)
  Receive Date: 20080913
  Receipt Date: 20080808
  Transmission Date: 20090109
  Serious: No
  Sender: FDA-Public Use
  Company Number: US-ABBOTT-08P-163-0469489-00

PATIENT
  Sex: Female
  Weight: 88.53 kg

DRUGS (5)
  1. HUMIRA [Suspect]
     Indication: RHEUMATOID ARTHRITIS
     Route: 058
     Dates: start: 20070701
  2. METHOTREXATE [Concomitant]
     Indication: RHEUMATOID ARTHRITIS
  3. HYDROXYCHLOROQUINE [Concomitant]
     Indication: RHEUMATOID ARTHRITIS
  4. FOLIC ACID [Concomitant]
     Indication: RHEUMATOID ARTHRITIS
  5. OMEPRAZOLE MAGNESIUM [Concomitant]
     Indication: GASTROOESOPHAGEAL REFLUX DISEASE

REACTIONS (2)
  - ACCIDENTAL EXPOSURE [None]
  - INJECTION SITE IRRITATION [None]
